FAERS Safety Report 5045644-1 (Version None)
Quarter: 2006Q3

REPORT INFORMATION
  Report Type: 
  Country: None (occurrence: None)
  Receive Date: 20060707
  Receipt Date: 20050329
  Transmission Date: 20061208
  Serious: Yes (Hospitalization)
  Sender: FDA-Public Use
  Company Number: MX-BOEHRINGER INGELHEIM PHARMACEUTICALS, INC.-2005-BP-05239MX

PATIENT
  Age: 53 Year
  Sex: Female

DRUGS (1)
  1. MOBICOX 15.0 MG TABLETS [Suspect]
     Indication: NEUROPATHY
     Route: 048
     Dates: start: 20050107, end: 20050127

REACTIONS (1)
  - DRUG INEFFECTIVE [None]
